FAERS Safety Report 16822954 (Version 1)
Quarter: 2019Q3

REPORT INFORMATION
  Report Type: Spontaneous
  Country: US (occurrence: US)
  Receive Date: 20190918
  Receipt Date: 20190918
  Transmission Date: 20191005
  Serious: No
  Sender: FDA-Public Use
  Company Number: US-VIFOR (INTERNATIONAL) INC.-VIT-2019-08283

PATIENT
  Sex: Male

DRUGS (6)
  1. CHLORTHALID [Concomitant]
     Active Substance: CHLORTHALIDONE
  2. VELTASSA [Suspect]
     Active Substance: PATIROMER
     Indication: HYPERKALAEMIA
     Route: 048
     Dates: start: 20160808
  3. LANTUS [Concomitant]
     Active Substance: INSULIN GLARGINE
  4. SODIUM BICAR [Concomitant]
  5. LISINOPRIL. [Concomitant]
     Active Substance: LISINOPRIL
  6. AMLODIPINE [Concomitant]
     Active Substance: AMLODIPINE BESYLATE

REACTIONS (2)
  - Product dose omission [Unknown]
  - Diarrhoea [Not Recovered/Not Resolved]
